FAERS Safety Report 14347198 (Version 2)
Quarter: 2018Q1

REPORT INFORMATION
  Report Type: Report from Study
  Country: US (occurrence: US)
  Receive Date: 20180103
  Receipt Date: 20180118
  Transmission Date: 20180509
  Serious: Yes (Other)
  Sender: FDA-Public Use
  Company Number: US-VERTEX PHARMACEUTICALS-2017-005262

PATIENT
  Age: 10 Year
  Sex: Female

DRUGS (1)
  1. KALYDECO [Suspect]
     Active Substance: IVACAFTOR
     Indication: CYSTIC FIBROSIS
     Dosage: 150 MG, BID
     Route: 048
     Dates: start: 20170913

REACTIONS (8)
  - Staphylococcal infection [Unknown]
  - Swelling face [Unknown]
  - Tonsillectomy [Recovering/Resolving]
  - Sinusitis bacterial [Recovering/Resolving]
  - Infectious mononucleosis [Not Recovered/Not Resolved]
  - Adenoidectomy [Unknown]
  - Dehydration [Unknown]
  - Oropharyngeal pain [Unknown]

NARRATIVE: CASE EVENT DATE: 201709
